FAERS Safety Report 5282607-5 (Version None)
Quarter: 2007Q1

REPORT INFORMATION
  Report Type: 
  Country: None (occurrence: None)
  Receive Date: 20070326
  Receipt Date: 20070309
  Transmission Date: 20070707
  Serious: Yes (Death)
  Sender: FDA-Public Use
  Company Number: E3810-00698-SOL-US

PATIENT
  Sex: Female

DRUGS (6)
  1. ACIPHEX [Suspect]
     Indication: GASTROOESOPHAGEAL REFLUX DISEASE
     Dosage: 20 MG, ORAL
     Route: 048
     Dates: start: 20031001
  2. FENTANYL PATCH (FENTANYL) [Concomitant]
  3. LIDODERM [Concomitant]
  4. PHENAZOPYRIDINE HCL TAB [Concomitant]
  5. MEPERIDINE HCL [Concomitant]
  6. CELEBREX [Concomitant]

REACTIONS (1)
  - BRAIN CANCER METASTATIC [None]
